FAERS Safety Report 4490157-9 (Version None)
Quarter: 2004Q4

REPORT INFORMATION
  Report Type: 
  Country: None (occurrence: None)
  Receive Date: 20041028
  Receipt Date: 20041018
  Transmission Date: 20050328
  Serious: Yes (Other)
  Sender: FDA-Public Use
  Company Number: 001-0981-996158

PATIENT
  Age: 48 Year
  Sex: Male
  Weight: 188.5 kg

DRUGS (9)
  1. ATORVASTATIN (ATORVASTATIN) [Suspect]
     Indication: CORONARY ARTERY DISEASE
     Dosage: SEE IMAGE
     Route: 048
     Dates: start: 19990301, end: 19990509
  2. ATORVASTATIN (ATORVASTATIN) [Suspect]
     Indication: CORONARY ARTERY DISEASE
     Dosage: SEE IMAGE
     Route: 048
     Dates: start: 19990510
  3. ASPIRIN [Concomitant]
  4. AMLODIPINE (AMLODIPINE) [Concomitant]
  5. ATENOLOL [Concomitant]
  6. LANSOPRAZOLE [Concomitant]
  7. TOCOPHEROL CONCENTRATE CAP [Concomitant]
  8. FOLIC ACID [Concomitant]
  9. NITROGLYCERIN [Concomitant]

REACTIONS (6)
  - BLOOD PRESSURE SYSTOLIC INCREASED [None]
  - CARDIAC MURMUR [None]
  - DIABETES MELLITUS [None]
  - LETHARGY [None]
  - VISION BLURRED [None]
  - WEIGHT DECREASED [None]
